FAERS Safety Report 23835170 (Version 1)
Quarter: 2024Q2

REPORT INFORMATION
  Report Type: Report from Study
  Country: US (occurrence: US)
  Receive Date: 20240509
  Receipt Date: 20240509
  Transmission Date: 20240716
  Serious: Yes (Hospitalization, Other)
  Sender: FDA-Public Use
  Company Number: US-ABBVIE-5749722

PATIENT
  Sex: Male

DRUGS (1)
  1. LUPRON [Suspect]
     Active Substance: LEUPROLIDE ACETATE
     Indication: Product used for unknown indication
     Route: 065
     Dates: start: 20240429

REACTIONS (7)
  - Prostate cancer stage IV [Not Recovered/Not Resolved]
  - Pruritus [Not Recovered/Not Resolved]
  - Bone cancer [Not Recovered/Not Resolved]
  - Dysphagia [Not Recovered/Not Resolved]
  - Lung disorder [Unknown]
  - Dysphonia [Unknown]
  - Sneezing [Unknown]

NARRATIVE: CASE EVENT DATE: 20240101
